FAERS Safety Report 4427844-4 (Version None)
Quarter: 2004Q3

REPORT INFORMATION
  Report Type: 
  Country: None (occurrence: None)
  Receive Date: 20040812
  Receipt Date: 20040804
  Transmission Date: 20050211
  Serious: Yes (Hospitalization)
  Sender: FDA-Public Use
  Company Number: K200401161

PATIENT
  Age: 39 Year
  Sex: Male

DRUGS (8)
  1. ALTACE [Suspect]
     Dosage: 5 MG, QD, ORAL
     Route: 048
     Dates: end: 20040709
  2. FUROSEMIDE [Suspect]
     Dosage: 40 MG, QD, ORAL
     Route: 048
     Dates: end: 20040709
  3. OFLOXACIN [Suspect]
     Indication: URINARY TRACT INFECTION
     Dosage: 200 MG, BID, ORAL
     Route: 048
     Dates: start: 20040705, end: 20040709
  4. CORTANCYL (PREDNISOLONE) TABLET [Concomitant]
  5. CELLCEPT [Concomitant]
  6. AMLODIPINE BESYLATE [Concomitant]
  7. TENORMIN [Concomitant]
  8. UN-ALFA (ALFACALCIDOL) [Concomitant]

REACTIONS (7)
  - ESCHERICHIA URINARY TRACT INFECTION [None]
  - GLOMERULONEPHRITIS [None]
  - PYREXIA [None]
  - RENAL FAILURE ACUTE [None]
  - RENAL TUBULAR DISORDER [None]
  - TRANSPLANT REJECTION [None]
  - WEIGHT DECREASED [None]
